FAERS Safety Report 4450587-8 (Version None)
Quarter: 2004Q3

REPORT INFORMATION
  Report Type: 
  Country: None (occurrence: None)
  Receive Date: 20040913
  Receipt Date: 20040629
  Transmission Date: 20050211
  Serious: No
  Sender: FDA-Public Use
  Company Number: 2004-BP-05294BP(0)

PATIENT
  Age: 66 Year
  Sex: Male
  Weight: 103.4 kg

DRUGS (6)
  1. SPIRIVA [Suspect]
     Indication: CHRONIC OBSTRUCTIVE AIRWAYS DISEASE
     Dosage: 18 MCG (18 MCG, 1 IN 1 D), IH
     Route: 055
     Dates: start: 20040616, end: 20040622
  2. COREG [Concomitant]
  3. LIPITOR [Concomitant]
  4. NIACIN [Concomitant]
  5. PRINZIDE [Concomitant]
  6. ZENORITA [Concomitant]

REACTIONS (3)
  - COUGH [None]
  - SENSATION OF FOREIGN BODY [None]
  - THROAT IRRITATION [None]
